FAERS Safety Report 12774781 (Version 3)
Quarter: 2016Q4

REPORT INFORMATION
  Report Type: Spontaneous
  Country: JP (occurrence: JP)
  Receive Date: 20160923
  Receipt Date: 20161229
  Transmission Date: 20170207
  Serious: Yes (Life-Threatening)
  Sender: FDA-Public Use
  Company Number: JP-MALLINCKRODT-T201604404

PATIENT
  Age: 78 Year
  Sex: Male
  Weight: 57 kg

DRUGS (17)
  1. HICALIQ [Concomitant]
     Active Substance: CALCIUM GLUCONATE\DEXTROSE\MAGNESIUM SULFATE\POTASSIUM ACETATE\POTASSIUM PHOSPHATE, DIBASIC\ZINC SULFATE
     Dosage: UNK
  2. AMIPAREN [Concomitant]
     Active Substance: AMINO ACIDS
     Indication: NUTRITIONAL SUPPLEMENTATION
     Dosage: 800 ML
     Route: 041
     Dates: start: 20160301, end: 20160610
  3. POTASSIUM ASPARTATE [Concomitant]
     Active Substance: POTASSIUM ASPARTATE
     Indication: ELECTROLYTE SUBSTITUTION THERAPY
     Dosage: 40 ML
     Route: 041
     Dates: start: 20160306, end: 20160706
  4. REBAMIPIDE [Concomitant]
     Active Substance: REBAMIPIDE
     Indication: GASTRITIS PROPHYLAXIS
     Dosage: 300 MG
     Route: 048
     Dates: start: 20160302, end: 20160404
  5. OFIRMEV [Suspect]
     Active Substance: ACETAMINOPHEN
     Indication: ANTIPYRESIS
     Dosage: 1000 MG
     Route: 042
     Dates: start: 20160403, end: 20160403
  6. FUROSEMIDE. [Suspect]
     Active Substance: FUROSEMIDE
     Indication: POLYURIA
     Dosage: 40 MG
     Route: 042
     Dates: start: 20160304, end: 20160512
  7. GASTER [Concomitant]
     Active Substance: FAMOTIDINE
     Indication: PROPHYLAXIS AGAINST GASTROINTESTINAL ULCER
     Dosage: 2 DF
     Route: 041
     Dates: start: 20160304, end: 20160508
  8. INTRALIPOS [Concomitant]
     Active Substance: SOYBEAN OIL
     Indication: NUTRITIONAL SUPPLEMENTATION
     Dosage: 100 ML
     Route: 042
     Dates: start: 20160402, end: 20160420
  9. MORPHINE HYDROCHLORIDE TRIHYDRATE [Suspect]
     Active Substance: MORPHINE HYDROCHLORIDE
     Indication: RESPIRATORY DISORDER
     Dosage: 36 MG
     Route: 042
     Dates: start: 20160302, end: 20160508
  10. METOPROLOL TARTRATE. [Concomitant]
     Active Substance: METOPROLOL TARTRATE
     Indication: ELECTROLYTE SUBSTITUTION THERAPY
     Dosage: 1 DF
     Route: 041
     Dates: start: 20160301, end: 20160511
  11. SODIUM PHOSPHATE [Concomitant]
     Active Substance: SODIUM PHOSPHATE
     Indication: ELECTROLYTE SUBSTITUTION THERAPY
     Dosage: 20 ML
     Route: 042
     Dates: start: 20160315, end: 20160511
  12. HICALIQ [Concomitant]
     Active Substance: CALCIUM GLUCONATE\DEXTROSE\MAGNESIUM SULFATE\POTASSIUM ACETATE\POTASSIUM PHOSPHATE, DIBASIC\ZINC SULFATE
     Indication: NUTRITIONAL SUPPLEMENTATION
     Dosage: 700 ML
     Route: 041
     Dates: start: 20160301, end: 20160511
  13. MULTAMIN [Concomitant]
     Indication: VITAMIN SUPPLEMENTATION
     Dosage: 1 DF
     Route: 041
     Dates: start: 20160301, end: 20160610
  14. MARZULENE [Concomitant]
     Active Substance: SODIUM GUALENATE
     Indication: GASTRITIS PROPHYLAXIS
     Dosage: 3 G
     Route: 048
     Dates: start: 20160311, end: 20160404
  15. OFIRMEV [Suspect]
     Active Substance: ACETAMINOPHEN
     Indication: PYREXIA
     Dosage: 400 MG (400 ML/HOUR)
     Route: 042
     Dates: start: 20160408, end: 20160408
  16. ECABET NA [Concomitant]
     Indication: PROPHYLAXIS AGAINST GASTROINTESTINAL ULCER
     Dosage: 2000 MG
     Route: 048
     Dates: start: 20160302, end: 20160404
  17. OFIRMEV [Suspect]
     Active Substance: ACETAMINOPHEN
     Indication: POLYURIA

REACTIONS (3)
  - Shock [Recovered/Resolved]
  - Blood pressure decreased [Recovered/Resolved]
  - Miliaria [Recovered/Resolved]

NARRATIVE: CASE EVENT DATE: 20160403
